FAERS Safety Report 11153196 (Version 1)
Quarter: 2015Q2

REPORT INFORMATION
  Report Type: Spontaneous
  Country: US (occurrence: US)
  Receive Date: 20150601
  Receipt Date: 20150601
  Transmission Date: 20150821
  Serious: No
  Sender: FDA-Public Use
  Company Number: US-BAXTER-2015BAX026756

PATIENT

DRUGS (13)
  1. APP FOLIC ACID [Suspect]
     Active Substance: FOLIC ACID
     Indication: PARENTERAL NUTRITION
     Dosage: 10 VIAL (SEQ 5)
     Route: 042
  2. FREAMINE HBC [Suspect]
     Active Substance: ALANINE\ARGININE\CYSTEINE HYDROCHLORIDE\GLYCINE\HISTIDINE\ISOLEUCINE\LEUCINE\LYSINE ACETATE\METHIONINE\PHENYLALANINE\PROLINE\SERINE\THREONINE\TRYPTOPHAN\VALINE
     Indication: PARENTERAL NUTRITION
     Dosage: 750 BOTTLE (SEQ 2)
     Route: 042
  3. FREAMINE HBC [Suspect]
     Active Substance: ALANINE\ARGININE\CYSTEINE HYDROCHLORIDE\GLYCINE\HISTIDINE\ISOLEUCINE\LEUCINE\LYSINE ACETATE\METHIONINE\PHENYLALANINE\PROLINE\SERINE\THREONINE\TRYPTOPHAN\VALINE
     Dosage: 750 BOTTLE (SEQ 3)
     Route: 042
  4. SELENIUM [Suspect]
     Active Substance: SELENIUM
     Indication: PARENTERAL NUTRITION
     Dosage: 10 VIAL (SEQ 4)
     Route: 042
  5. THIAMINE [Suspect]
     Active Substance: THIAMINE
     Indication: PARENTERAL NUTRITION
     Route: 042
  6. STERILE WATER [Suspect]
     Active Substance: WATER
     Indication: PARENTERAL NUTRITION
     Dosage: IN 2000 BAG (SEQ 8)
     Route: 042
  7. 70% DEXTROSE INJECTION, USP [Suspect]
     Active Substance: DEXTROSE
     Indication: PARENTERAL NUTRITION
     Dosage: 2000 BAG (SEQ 6)
     Route: 042
  8. ASCORBIC ACID. [Suspect]
     Active Substance: ASCORBIC ACID
     Indication: PARENTERAL NUTRITION
     Dosage: 50 VIAL (SEQ 7)
     Route: 042
  9. PHYTONADIONE. [Suspect]
     Active Substance: PHYTONADIONE
     Indication: PARENTERAL NUTRITION
     Route: 042
  10. NA PHOSPHATE [Suspect]
     Active Substance: SODIUM PHOSPHATE
     Indication: PARENTERAL NUTRITION
     Dosage: 3 MMOL/ML PO4
     Route: 042
  11. INFUVITE ADULT [Suspect]
     Active Substance: .ALPHA.-TOCOPHEROL ACETATE\ASCORBIC ACID\BIOTIN\CHOLECALCIFEROL\CYANOCOBALAMIN\DEXPANTHENOL\FOLIC ACID\NIACINAMIDE\PHYTONADIONE\PYRIDOXINE HYDROCHLORIDE\RIBOFLAVIN 5^-PHOSPHATE SODIUM\THIAMINE HYDROCHLORIDE\VITAMIN A PALMITATE
     Indication: PARENTERAL NUTRITION
     Dosage: 100 VIAL (SEQ 1)
     Route: 042
  12. ZINC SULFATE [Suspect]
     Active Substance: ZINC SULFATE\ZINC SULFATE ANHYDROUS
     Indication: PARENTERAL NUTRITION
     Route: 042
  13. STERILE WATER [Suspect]
     Active Substance: WATER
     Dosage: IN 2000 BAG (SEQ 9)
     Route: 042

REACTIONS (3)
  - Poor quality drug administered [Unknown]
  - Product deposit [Unknown]
  - No adverse event [Recovered/Resolved]
